FAERS Safety Report 13382673 (Version 11)
Quarter: 2019Q2

REPORT INFORMATION
  Report Type: Spontaneous
  Country: US (occurrence: US)
  Receive Date: 20170329
  Receipt Date: 20190410
  Transmission Date: 20190711
  Serious: Yes (Other)
  Sender: FDA-Public Use
  Company Number: PHEH2017US008766

PATIENT
  Sex: Male

DRUGS (5)
  1. LENVIMA [Suspect]
     Active Substance: LENVATINIB
     Dosage: 10 MG, QD
     Route: 048
     Dates: start: 20170303
  2. AFINITOR [Suspect]
     Active Substance: EVEROLIMUS
     Indication: RENAL CELL CARCINOMA
     Dosage: 5 MG, QD
     Route: 048
  3. LENVIMA [Suspect]
     Active Substance: LENVATINIB
     Indication: RENAL CANCER
     Dosage: 14 MG, QD
     Route: 048
     Dates: start: 20170303
  4. AFINITOR [Suspect]
     Active Substance: EVEROLIMUS
     Indication: BENIGN RENAL NEOPLASM
  5. LENVIMA [Suspect]
     Active Substance: LENVATINIB
     Dosage: 10 MG DAY 1 THEN 10 MG DAY 2 THEN 8 MG DAY 3
     Route: 048

REACTIONS (14)
  - Renal cell carcinoma [Unknown]
  - Dizziness [Unknown]
  - Transient ischaemic attack [Unknown]
  - Memory impairment [Not Recovered/Not Resolved]
  - Renal neoplasm [Unknown]
  - Fatigue [Unknown]
  - Balance disorder [Unknown]
  - Pruritus [Unknown]
  - Anxiety [Unknown]
  - Stomatitis [Unknown]
  - Constipation [Unknown]
  - Amnesia [Unknown]
  - Thyroid function test abnormal [Unknown]
  - Malignant neoplasm progression [Unknown]
